FAERS Safety Report 7897884-1 (Version None)
Quarter: 2011Q4

REPORT INFORMATION
  Report Type: 
  Country: None (occurrence: None)
  Receive Date: 20111103
  Receipt Date: 20111103
  Transmission Date: 20120403
  Serious: Yes (Disabling)
  Sender: FDA-Public Use
  Company Number: 1022556-2011-00020

PATIENT
  Sex: Female

DRUGS (1)
  1. ICY HOT CREAM-GENERIC [Suspect]
     Indication: MYALGIA
     Dosage: TOPICAL, ONCE
     Route: 061

REACTIONS (6)
  - APPLICATION SITE BURN [None]
  - APPLICATION SITE PHOTOSENSITIVITY REACTION [None]
  - APPLICATION SITE SCAR [None]
  - IMPAIRED HEALING [None]
  - APPLICATION SITE EXFOLIATION [None]
  - APPLICATION SITE PAIN [None]
